FAERS Safety Report 18904085 (Version 1)
Quarter: 2021Q1

REPORT INFORMATION
  Report Type: Spontaneous
  Country: US (occurrence: US)
  Receive Date: 20210216
  Receipt Date: 20210216
  Transmission Date: 20210420
  Serious: Yes (Other)
  Sender: FDA-Public Use
  Company Number: None

PATIENT
  Age: 22 Year
  Sex: Female
  Weight: 95.4 kg

DRUGS (1)
  1. QUETIAPINE SUSTAINED RELEASED [Suspect]
     Active Substance: QUETIAPINE
     Indication: SCHIZOPHRENIA
     Route: 048
     Dates: start: 20210106, end: 20210208

REACTIONS (3)
  - Influenza like illness [None]
  - Pyrexia [None]
  - Hypersensitivity [None]

NARRATIVE: CASE EVENT DATE: 20210205
